FAERS Safety Report 18678726 (Version 1)
Quarter: 2020Q4

REPORT INFORMATION
  Report Type: Spontaneous
  Country: ZA (occurrence: ZA)
  Receive Date: 20201230
  Receipt Date: 20201230
  Transmission Date: 20210114
  Serious: Yes (Other)
  Sender: FDA-Public Use
  Company Number: ZA-LUPIN PHARMACEUTICALS INC.-2020-10850

PATIENT
  Sex: Male

DRUGS (7)
  1. PLAGRIL [Suspect]
     Active Substance: CLOPIDOGREL BISULFATE
     Indication: BLOOD DISORDER
     Dosage: 75 MILLIGRAM
     Route: 048
  2. PEARINDA TABLETS [Suspect]
     Active Substance: PERINDOPRIL ERBUMINE
     Dosage: 8 MILLIGRAM
     Route: 048
  3. URBANOL [Suspect]
     Active Substance: CLOBAZAM
     Indication: STRESS
     Dosage: 5 MILLIGRAM
     Route: 048
  4. SPIRACTIN [PIMECLONE HYDROCHLORIDE] [Suspect]
     Active Substance: PIMECLONE HYDROCHLORIDE
     Indication: DIURETIC THERAPY
     Dosage: 25 MILLIGRAM
     Route: 048
  5. ATORVASTATIN CALCIUM. [Suspect]
     Active Substance: ATORVASTATIN CALCIUM
     Indication: BLOOD CHOLESTEROL
     Dosage: 40 MILLIGRAM
     Route: 048
  6. CARLOC [Suspect]
     Active Substance: CARVEDILOL
     Indication: CARDIAC DISORDER
     Dosage: 6.25 MILLIGRAM
     Route: 048
  7. MYOPRIN [Suspect]
     Active Substance: ASPIRIN
     Indication: BLOOD DISORDER
     Dosage: 100 MILLIGRAM
     Route: 048

REACTIONS (1)
  - Myocardial infarction [Unknown]
